FAERS Safety Report 11904889 (Version 1)
Quarter: 2016Q1

REPORT INFORMATION
  Report Type: Spontaneous
  Country: US (occurrence: US)
  Receive Date: 20160108
  Receipt Date: 20160108
  Transmission Date: 20160526
  Serious: Yes (Hospitalization)
  Sender: FDA-Public Use
  Company Number: US-ROCHE-1506694

PATIENT
  Age: 51 Year
  Sex: Male

DRUGS (1)
  1. ACTIVASE [Suspect]
     Active Substance: ALTEPLASE
     Indication: INTRACARDIAC THROMBUS
     Dosage: THE FIRST DOSE WAS ADMINISTERED 20 MINUTES AFTER THE HEPARIN DOSE AND CONSISTED OF A10-MG INTRAVENOU
     Route: 042

REACTIONS (1)
  - Post procedural stroke [Not Recovered/Not Resolved]
